FAERS Safety Report 18950392 (Version 1)
Quarter: 2021Q1

REPORT INFORMATION
  Report Type: Spontaneous
  Country: US (occurrence: US)
  Receive Date: 20210228
  Receipt Date: 20210228
  Transmission Date: 20210420
  Serious: No
  Sender: FDA-Public Use
  Company Number: US-ROCHE-2732891

PATIENT
  Sex: Female

DRUGS (23)
  1. XOLAIR [Suspect]
     Active Substance: OMALIZUMAB
     Indication: CHRONIC SPONTANEOUS URTICARIA
     Route: 065
  2. ALBUTEROL HFA [Concomitant]
     Active Substance: ALBUTEROL SULFATE
     Indication: WHEEZING
     Dosage: INHALE 1?2 PUFFS INTO THE LUNGS EVERY 6 HOURS AS NEEDED
  3. ALBUTEROL HFA [Concomitant]
     Active Substance: ALBUTEROL SULFATE
     Indication: DYSPNOEA
  4. ALBUTEROL HFA [Concomitant]
     Active Substance: ALBUTEROL SULFATE
     Indication: DYSPNOEA
  5. TRIAMCINOLONE [Concomitant]
     Active Substance: TRIAMCINOLONE
     Dosage: APPLY TWICE DAILY
     Route: 061
  6. ALBUTEROL HFA [Concomitant]
     Active Substance: ALBUTEROL SULFATE
     Indication: WHEEZING
     Dosage: INHALE 2 PUFFS BY MOUTH EVERY 4 HOURS AS NEEDED
  7. ASCORBIC ACID. [Concomitant]
     Active Substance: ASCORBIC ACID
     Route: 048
  8. PEPCID [Concomitant]
     Active Substance: FAMOTIDINE
     Dosage: TAKE 1 TABLET (20MG TOTAL ) BY MOUTH 2 TIMES DAILY
     Route: 048
  9. VILANTEROL [Concomitant]
     Active Substance: VILANTEROL TRIFENATATE
     Dosage: INHALE 1 INHALER INTO THE LUNGS DAILY
  10. HYDROCORTISONE. [Concomitant]
     Active Substance: HYDROCORTISONE
     Indication: HAEMORRHOIDS
     Route: 054
  11. VITAMIN B COMPLEX [Concomitant]
     Active Substance: CYANOCOBALAMIN\DEXPANTHENOL\NIACINAMIDE\PYRIDOXINE HYDROCHLORIDE\RIBOFLAVIN 5^-PHOSPHATE SODIUM\THIAMINE HYDROCHLORIDE\VITAMIN B COMPLEX
     Route: 048
  12. CETIRIZINE [Concomitant]
     Active Substance: CETIRIZINE HYDROCHLORIDE
     Route: 048
  13. OLOPATADINE. [Concomitant]
     Active Substance: OLOPATADINE
     Dosage: INSTILL 1 DROP INTO BOTH EYES 2 TIMES DAILY
  14. PRISTIQ EXTENDED?RELEASE [Concomitant]
     Active Substance: DESVENLAFAXINE SUCCINATE
     Dosage: TAKE A 50 MG AND 25 MG EVERY OTHER DAY
  15. PRISTIQ EXTENDED?RELEASE [Concomitant]
     Active Substance: DESVENLAFAXINE SUCCINATE
     Route: 048
  16. ZYRTEC (UNITED STATES) [Concomitant]
  17. CHOLECALCIFEROL [Concomitant]
     Active Substance: CHOLECALCIFEROL
     Route: 048
  18. LOTRISONE [Concomitant]
     Active Substance: BETAMETHASONE DIPROPIONATE\CLOTRIMAZOLE
     Route: 061
  19. NASONEX [Concomitant]
     Active Substance: MOMETASONE FUROATE
     Route: 045
  20. SYNTHROID [Concomitant]
     Active Substance: LEVOTHYROXINE SODIUM
     Dosage: TAKE 1 TABELT DAILY EXCEPT SUNDAYS (6 WEEKLY) DAW?1
  21. EPINEPHRINE. [Concomitant]
     Active Substance: EPINEPHRINE
     Route: 030
  22. XOLAIR [Suspect]
     Active Substance: OMALIZUMAB
     Indication: C-REACTIVE PROTEIN INCREASED
  23. MONTELUKAST [Concomitant]
     Active Substance: MONTELUKAST SODIUM
     Route: 048

REACTIONS (6)
  - Dizziness [Recovered/Resolved]
  - Vomiting [Recovered/Resolved]
  - Rash [Recovered/Resolved]
  - Vertigo [Recovered/Resolved]
  - Chills [Recovered/Resolved]
  - Nausea [Recovered/Resolved]
